FAERS Safety Report 9057360 (Version 1)
Quarter: 2013Q1

REPORT INFORMATION
  Report Type: Spontaneous
  Country: IT (occurrence: IT)
  Receive Date: 20130204
  Receipt Date: 20130204
  Transmission Date: 20140127
  Serious: Yes (Hospitalization)
  Sender: FDA-Public Use
  Company Number: PHHY2013IT009276

PATIENT
  Sex: Female

DRUGS (2)
  1. LORAZEPAM [Suspect]
  2. ENALAPRIL [Suspect]

REACTIONS (1)
  - Syncope [Recovering/Resolving]
